FAERS Safety Report 7715180-X (Version None)
Quarter: 2011Q3

REPORT INFORMATION
  Report Type: 
  Country: None (occurrence: None)
  Receive Date: 20110822
  Receipt Date: 20110805
  Transmission Date: 20111222
  Serious: Yes (Death)
  Sender: FDA-Public Use
  Company Number: 2011MA011499

PATIENT
  Age: 31 Year
  Sex: Male

DRUGS (4)
  1. DIAZEPAM [Suspect]
  2. 3,4-METHYLENEDIOXYMETHAMPHETAMINE (NO PREF. NAME) [Suspect]
  3. METHAMPHETAMINE HYDROCHLORIDE [Suspect]
  4. DOTHIEPIN HYDROCHLORIDE [Suspect]

REACTIONS (3)
  - TOXICITY TO VARIOUS AGENTS [None]
  - DRUG INTERACTION [None]
  - DROWNING [None]
